FAERS Safety Report 20510440 (Version 1)
Quarter: 2022Q1

REPORT INFORMATION
  Report Type: Spontaneous
  Country: GB (occurrence: GB)
  Receive Date: 20220224
  Receipt Date: 20220224
  Transmission Date: 20220423
  Serious: Yes (Other)
  Sender: FDA-Public Use
  Company Number: GB-TILLOMED LABORATORIES LTD.-2022-EPL-000315

PATIENT

DRUGS (3)
  1. LOPERAMIDE [Suspect]
     Active Substance: LOPERAMIDE
     Indication: Product used for unknown indication
     Dosage: UNK (ANY EXTRA TO ENSURE A LOOSE BOWEL MOVEMENT, WHICH USUALLY AMOUNTED TO THREE EXTRA PER DAY)
     Route: 065
  2. LOPERAMIDE [Suspect]
     Active Substance: LOPERAMIDE
     Dosage: 5 DOSAGE FORM, TWO TIMES A DAY (5 DURING MORNING AND 5 AT NIGHT )
     Route: 065
  3. LOPERAMIDE [Suspect]
     Active Substance: LOPERAMIDE
     Dosage: 4 DOSAGE FORM, TWO TIMES A DAY (4 CAPSULES IN THE MORNING AND 4 AT NIGHT)
     Route: 065
     Dates: start: 201904

REACTIONS (6)
  - Heart rate irregular [Unknown]
  - Dyspnoea [Unknown]
  - Somnolence [Unknown]
  - Fatigue [Unknown]
  - Flatulence [Unknown]
  - Prescribed overdose [Unknown]
